FAERS Safety Report 12918008 (Version 1)
Quarter: 2016Q4

REPORT INFORMATION
  Report Type: Spontaneous
  Country: US (occurrence: US)
  Receive Date: 20161107
  Receipt Date: 20161107
  Transmission Date: 20170207
  Serious: No
  Sender: FDA-Public Use
  Company Number: US-ALLERGAN-1648923

PATIENT
  Age: 89 Year
  Sex: Male

DRUGS (2)
  1. SILODOSIN UNK [Suspect]
     Active Substance: SILODOSIN
     Indication: PROSTATISM
     Dosage: 8 MG, DAILY
     Route: 048
  2. CLOPIDOGREL [Concomitant]
     Active Substance: CLOPIDOGREL BISULFATE
     Indication: MYOCARDIAL INFARCTION
     Dosage: 75 MG, DAILY
     Route: 048

REACTIONS (2)
  - Drug effect incomplete [Recovered/Resolved]
  - Inhibitory drug interaction [Recovered/Resolved]
